FAERS Safety Report 6920245-6 (Version None)
Quarter: 2010Q3

REPORT INFORMATION
  Report Type: 
  Country: None (occurrence: None)
  Receive Date: 20100809
  Receipt Date: 20100729
  Transmission Date: 20110219
  Serious: Yes (Other)
  Sender: FDA-Public Use
  Company Number: US-1182829

PATIENT
  Age: 71 Year

DRUGS (1)
  1. BSS PLUS INTRAOCULAR SOLUTION [Suspect]
     Dosage: INTRAOCULAR
     Route: 031
     Dates: start: 20100719, end: 20100719

REACTIONS (1)
  - ENDOPHTHALMITIS [None]
